FAERS Safety Report 7786609-6 (Version None)
Quarter: 2011Q3

REPORT INFORMATION
  Report Type: 
  Country: None (occurrence: None)
  Receive Date: 20110929
  Receipt Date: 20110916
  Transmission Date: 20111222
  Serious: Yes (Other)
  Sender: FDA-Public Use
  Company Number: DK-ELI_LILLY_AND_COMPANY-DK201109006818

PATIENT
  Sex: Male

DRUGS (6)
  1. ZYPREXA [Suspect]
     Indication: SCHIZOPHRENIA, PARANOID TYPE
  2. ABILIFY [Concomitant]
     Indication: SCHIZOPHRENIA, PARANOID TYPE
  3. FLUPHENAZINE [Concomitant]
     Indication: SCHIZOPHRENIA, PARANOID TYPE
  4. RISPERDAL [Concomitant]
  5. DEPRAKINE [Concomitant]
     Indication: SCHIZOPHRENIA, PARANOID TYPE
  6. CISORDINOL                              /NET/ [Concomitant]
     Indication: SCHIZOPHRENIA, PARANOID TYPE

REACTIONS (7)
  - DYSKINESIA [None]
  - FATIGUE [None]
  - TOOTH DISORDER [None]
  - GINGIVAL DISORDER [None]
  - ORAL DISORDER [None]
  - TINNITUS [None]
  - TREMOR [None]
